FAERS Safety Report 10088206 (Version 1)
Quarter: 2014Q2

REPORT INFORMATION
  Report Type: Spontaneous
  Country: US (occurrence: US)
  Receive Date: 20140421
  Receipt Date: 20140421
  Transmission Date: 20141212
  Serious: No
  Sender: FDA-Public Use
  Company Number: US-BIOGENIDEC-2014BI037365

PATIENT
  Age: 65 Year
  Sex: Female

DRUGS (9)
  1. AVONEX [Suspect]
     Indication: MULTIPLE SCLEROSIS
     Route: 030
     Dates: start: 20110302
  2. ALENDRONATE SODIUM [Concomitant]
  3. CALCIUM 600 [Concomitant]
  4. CHROMIUM PICOLINATE [Concomitant]
  5. CRESTOR [Concomitant]
  6. FISH OIL [Concomitant]
  7. GARLIC [Concomitant]
  8. VITAMIN C [Concomitant]
  9. VITAMIN D-3 [Concomitant]

REACTIONS (1)
  - Pruritus [Unknown]
